FAERS Safety Report 23615168 (Version 1)
Quarter: 2024Q1

REPORT INFORMATION
  Report Type: Spontaneous
  Country: US (occurrence: US)
  Receive Date: 20240311
  Receipt Date: 20240311
  Transmission Date: 20240410
  Serious: No
  Sender: FDA-Public Use
  Company Number: US-BIOGEN-2022BI01129963

PATIENT
  Sex: Female

DRUGS (1)
  1. TYSABRI [Suspect]
     Active Substance: NATALIZUMAB
     Indication: Multiple sclerosis
     Route: 050
     Dates: start: 20070316

REACTIONS (5)
  - Inappropriate schedule of product administration [Unknown]
  - Back injury [Not Recovered/Not Resolved]
  - Multiple sclerosis pseudo relapse [Not Recovered/Not Resolved]
  - Multiple sclerosis [Unknown]
  - Fall [Recovered/Resolved]
